FAERS Safety Report 16987324 (Version 12)
Quarter: 2022Q2

REPORT INFORMATION
  Report Type: Spontaneous
  Country: NL (occurrence: NL)
  Receive Date: 20191102
  Receipt Date: 20220618
  Transmission Date: 20220721
  Serious: Yes (Hospitalization)
  Sender: FDA-Public Use
  Company Number: None

PATIENT
  Age: 89 Year
  Sex: Female
  Weight: 62.8 kg

DRUGS (8)
  1. MIRTAZAPINE [Suspect]
     Active Substance: MIRTAZAPINE
     Indication: Depressed mood
     Dosage: 15 MILLIGRAM DAILY;
     Dates: start: 20190508, end: 20191008
  2. ENALAPRIL [Suspect]
     Active Substance: ENALAPRIL
     Indication: Hypertension
     Dosage: 20 MILLIGRAM DAILY;
     Dates: start: 20181122, end: 20191010
  3. FRAGMIN [Concomitant]
     Active Substance: DALTEPARIN SODIUM
     Dosage: 1 DOSAGE FORMS DAILY; THERAPY END DATE : ASKED BUT UNKNOWN
     Dates: start: 20191008
  4. CHOLECALCIFEROL [Concomitant]
     Active Substance: CHOLECALCIFEROL
     Dosage: 1 X PER WEEK (THURSDAY) 1 PIECE, 5600 IU,THERAPY END DATE : ASKED BUT UNKNOWN
     Dates: start: 20191008
  5. ACETAMINOPHEN [Concomitant]
     Active Substance: ACETAMINOPHEN
     Dosage: THERAPY END DATE : ASKED BUT UNKNOWN:IF NECESSARY 4 X PER DAY 1 PIECE
     Dates: start: 20191008
  6. CHOLECALCIFEROL [Concomitant]
     Active Substance: CHOLECALCIFEROL
     Dosage: 800 IU (INTERNATIONAL UNIT) DAILY; 1 X PER DAY 1 PIECE (STOPPED) FROM RECORDING 8-10-2019, 800 IU
     Dates: start: 20190902, end: 20191008
  7. POLYETHYLENE GLYCOLS [Concomitant]
     Active Substance: POLYETHYLENE GLYCOLS
     Dosage: IF NECESSARY 1 X PER DAY:THERAPY END DATE : ASKED BUT UNKNOWN
     Dates: start: 20190902
  8. TEMAZEPAM [Concomitant]
     Active Substance: TEMAZEPAM
     Dosage: IF NECESSARY 1 X PER DAY 1 PIECE THERAPY END DATE : ASKED BUT UNKNOWN
     Dates: start: 20191008

REACTIONS (1)
  - Hyponatraemia [Recovered/Resolved]

NARRATIVE: CASE EVENT DATE: 20190821
